FAERS Safety Report 16283109 (Version 7)
Quarter: 2021Q2

REPORT INFORMATION
  Report Type: Report from Study
  Country: FR (occurrence: FR)
  Receive Date: 20190507
  Receipt Date: 20210618
  Transmission Date: 20210716
  Serious: Yes (Hospitalization, Other)
  Sender: FDA-Public Use
  Company Number: FR-BAUSCH-BL-2019-012903

PATIENT
  Sex: Female
  Weight: 75 kg

DRUGS (9)
  1. DAFALGAN CODEINE [Concomitant]
     Active Substance: ACETAMINOPHEN\CODEINE PHOSPHATE
     Indication: PAIN
  2. TRAMADOL. [Concomitant]
     Active Substance: TRAMADOL
     Indication: PAIN
  3. ELIQUIS [Concomitant]
     Active Substance: APIXABAN
     Indication: PRODUCT USED FOR UNKNOWN INDICATION
     Route: 065
  4. VIBRAMYCINE [Concomitant]
     Active Substance: DOXYCYCLINE HYDROCHLORIDE
     Indication: BRONCHITIS
     Route: 048
     Dates: start: 20190812
  5. SMECTA [Concomitant]
     Active Substance: MONTMORILLONITE
     Indication: DIARRHOEA
     Route: 048
     Dates: start: 20190802
  6. REVLIMID [Suspect]
     Active Substance: LENALIDOMIDE
     Indication: PLASMA CELL MYELOMA
     Route: 048
     Dates: start: 20180711
  7. PARACETAMOL [Concomitant]
     Active Substance: ACETAMINOPHEN
     Indication: PAIN
  8. IXAZOMIB [Suspect]
     Active Substance: IXAZOMIB
     Indication: PLASMA CELL MYELOMA
     Route: 065
     Dates: start: 20180711, end: 20191030
  9. DEXAMETHASONE. [Suspect]
     Active Substance: DEXAMETHASONE
     Indication: PRODUCT USED FOR UNKNOWN INDICATION
     Route: 065

REACTIONS (22)
  - Anaemia [Recovered/Resolved]
  - Renal failure [Recovered/Resolved]
  - Diarrhoea [Recovered/Resolved]
  - Dehydration [Recovered/Resolved]
  - Cough [Not Recovered/Not Resolved]
  - Rhabdomyolysis [Recovered/Resolved]
  - Oedema [Recovered/Resolved]
  - Bronchitis bacterial [Recovered/Resolved]
  - Weight decreased [Unknown]
  - Hyperuricaemia [Recovered/Resolved]
  - Urinary tract infection [Recovered/Resolved]
  - Thrombocytopenia [Recovered/Resolved]
  - Pain [Recovered/Resolved]
  - Pain in extremity [Recovering/Resolving]
  - Femur fracture [Recovered/Resolved]
  - Fall [Recovered/Resolved]
  - Gout [Recovered/Resolved]
  - Breast pain [Recovered/Resolved]
  - General physical health deterioration [Recovered/Resolved]
  - Vomiting [Recovered/Resolved]
  - Neutropenia [Recovered/Resolved]
  - Inflammation [Recovered/Resolved]

NARRATIVE: CASE EVENT DATE: 20180828
